FAERS Safety Report 18016363 (Version 1)
Quarter: 2020Q3

REPORT INFORMATION
  Report Type: Report from Study
  Country: CO (occurrence: CO)
  Receive Date: 20200713
  Receipt Date: 20200713
  Transmission Date: 20201103
  Serious: Yes (Death, Hospitalization)
  Sender: FDA-Public Use
  Company Number: CO-ASTRAZENECA-2020SE88115

PATIENT
  Age: 3714 Week
  Sex: Female

DRUGS (1)
  1. TAGRISSO [Suspect]
     Active Substance: OSIMERTINIB
     Indication: LUNG NEOPLASM MALIGNANT
     Route: 048
     Dates: start: 20190829, end: 20200705

REACTIONS (3)
  - Death [Fatal]
  - Suffocation feeling [Unknown]
  - Hip fracture [Unknown]

NARRATIVE: CASE EVENT DATE: 20200628
